FAERS Safety Report 8429591-0 (Version None)
Quarter: 2012Q2

REPORT INFORMATION
  Report Type: 
  Country: None (occurrence: None)
  Receive Date: 20120612
  Receipt Date: 20120608
  Transmission Date: 20120825
  Serious: Yes (Death)
  Sender: FDA-Public Use
  Company Number: PHHY2012JP049458

PATIENT
  Age: 92 Year
  Sex: Female

DRUGS (3)
  1. SANDOSTATIN LAR [Suspect]
     Indication: INSULINOMA
     Dosage: 20 MG, UNK
     Route: 030
     Dates: start: 20100101
  2. ULGUT [Concomitant]
     Route: 048
  3. NITRODERM [Suspect]
     Dosage: 1 DF, DAILY
     Route: 062
     Dates: start: 20100101

REACTIONS (1)
  - CEREBRAL HAEMORRHAGE [None]
